FAERS Safety Report 13959748 (Version 2)
Quarter: 2019Q3

REPORT INFORMATION
  Report Type: Report from Study
  Country: US (occurrence: US)
  Receive Date: 20170912
  Receipt Date: 20190724
  Transmission Date: 20191004
  Serious: No
  Sender: FDA-Public Use
  Company Number: US-ROCHE-1991033

PATIENT
  Age: 62 Year
  Sex: Female
  Weight: 69.46 kg

DRUGS (1)
  1. OCREVUS [Suspect]
     Active Substance: OCRELIZUMAB
     Indication: MULTIPLE SCLEROSIS
     Dosage: ONGOING:UNKNOWN?NEXT DOSE: 01/JUL/2019
     Route: 065
     Dates: start: 201707

REACTIONS (5)
  - Nasopharyngitis [Recovering/Resolving]
  - Conjunctivitis [Not Recovered/Not Resolved]
  - Eye infection [Not Recovered/Not Resolved]
  - Cough [Not Recovered/Not Resolved]
  - Pharyngitis streptococcal [Recovered/Resolved]

NARRATIVE: CASE EVENT DATE: 201708
